FAERS Safety Report 25686068 (Version 1)
Quarter: 2025Q3

REPORT INFORMATION
  Report Type: Spontaneous
  Country: CN (occurrence: CN)
  Receive Date: 20250815
  Receipt Date: 20250815
  Transmission Date: 20251020
  Serious: Yes (Life-Threatening)
  Sender: ORGANON
  Company Number: CN-BAT-2025BAT000780

PATIENT
  Age: 45 Year
  Sex: Female

DRUGS (2)
  1. TOCILIZUMAB-BAVI [Suspect]
     Active Substance: TOCILIZUMAB-BAVI
     Indication: Rheumatoid arthritis
     Dosage: 480.00 MG, ONLY ONCE
     Route: 041
     Dates: start: 20250727, end: 20250727
  2. SODIUM CHLORIDE [Concomitant]
     Active Substance: SODIUM CHLORIDE
     Indication: Vehicle solution use
     Dosage: 76.00 ML, ONLY ONCE
     Route: 041
     Dates: start: 20250727, end: 20250727

REACTIONS (8)
  - Rash erythematous [Recovering/Resolving]
  - Chest discomfort [Recovering/Resolving]
  - Tachypnoea [Recovering/Resolving]
  - Laryngeal discomfort [Recovering/Resolving]
  - Dyspnoea [Recovering/Resolving]
  - Abdominal pain upper [Recovering/Resolving]
  - Chills [Recovering/Resolving]
  - Pyrexia [Recovering/Resolving]

NARRATIVE: CASE EVENT DATE: 20250727
